FAERS Safety Report 4542145-1 (Version None)
Quarter: 2004Q4

REPORT INFORMATION
  Report Type: 
  Country: None (occurrence: None)
  Receive Date: 20041227
  Receipt Date: 20041214
  Transmission Date: 20050328
  Serious: Yes (Hospitalization)
  Sender: FDA-Public Use
  Company Number: 2004113812

PATIENT
  Age: 70 Year
  Sex: Male
  Weight: 74 kg

DRUGS (9)
  1. TIKOSYN [Suspect]
     Indication: ATRIAL FIBRILLATION
     Dosage: 500 MCG (250 MCG, 2 IN 1 D) ORAL
     Route: 048
     Dates: start: 20041206
  2. CLOPIDOGREL BISULFATE [Concomitant]
  3. METOPROLOL (METOPROLOL SUCCINATE) [Concomitant]
  4. ISOSORBIDE DINITRATE [Concomitant]
  5. SPIRONOLACTONE [Concomitant]
  6. DIGOXIN [Concomitant]
  7. POTASSIUM CHLORIDE [Concomitant]
  8. ASPIRIN [Concomitant]
  9. HYDRALAZINE HYDROCHLORIDE(HYDRALAZINE HYDROCHLORIDE) [Concomitant]

REACTIONS (2)
  - DISEASE RECURRENCE [None]
  - NEUTROPENIA [None]
